FAERS Safety Report 10108765 (Version 1)
Quarter: 2014Q2

REPORT INFORMATION
  Report Type: Report from Study
  Country: NO (occurrence: NO)
  Receive Date: 20140425
  Receipt Date: 20140425
  Transmission Date: 20141212
  Serious: Yes (Congenital Anomaly)
  Sender: FDA-Public Use
  Company Number: NO-ACCORD-023256

PATIENT
  Sex: 0

DRUGS (4)
  1. CLONAZEPAM [Suspect]
     Indication: EPILEPSY
     Route: 064
  2. LAMOTRIGINE [Suspect]
     Indication: EPILEPSY
     Route: 064
     Dates: start: 2010
  3. VALPROIC ACID [Suspect]
     Indication: EPILEPSY
     Dosage: UNKNOWN DOSE
     Dates: start: 2010
  4. LEVETIRACETAM [Suspect]
     Indication: EPILEPSY
     Dosage: DAILY DOSE: 1000 (UNITS UNSPECIFIED)
     Route: 064
     Dates: start: 2010

REACTIONS (3)
  - Congenital monorchidism [Unknown]
  - Foetal exposure during pregnancy [Recovered/Resolved]
  - Developmental hip dysplasia [Unknown]
